FAERS Safety Report 8026047-4 (Version None)
Quarter: 2012Q1

REPORT INFORMATION
  Report Type: 
  Country: None (occurrence: None)
  Receive Date: 20120105
  Receipt Date: 20110513
  Transmission Date: 20120608
  Serious: No
  Sender: FDA-Public Use
  Company Number: US-ABBOTT-11P-163-0725978-00

PATIENT
  Sex: Female
  Weight: 86.26 kg

DRUGS (3)
  1. CORTISONE ACETATE [Concomitant]
     Indication: BLOOD SODIUM ABNORMAL
  2. PROTONIX [Concomitant]
     Indication: GASTROOESOPHAGEAL REFLUX DISEASE
  3. SYNTHROID [Suspect]
     Indication: HYPOTHYROIDISM
     Dosage: DR INSTRUCTED TO TAKE IN THE EVENING
     Dates: start: 19810101

REACTIONS (1)
  - CHEST PAIN [None]
